FAERS Safety Report 20146909 (Version 1)
Quarter: 2021Q4

REPORT INFORMATION
  Report Type: Spontaneous
  Country: CA (occurrence: CA)
  Receive Date: 20211203
  Receipt Date: 20211203
  Transmission Date: 20220303
  Serious: Yes (Life-Threatening, Hospitalization)
  Sender: FDA-Public Use
  Company Number: CA-TEVA-2021-CA-1983423

PATIENT
  Age: 80 Year
  Sex: Female

DRUGS (8)
  1. DONEPEZIL [Suspect]
     Active Substance: DONEPEZIL
     Route: 065
  2. SERTRALINE [Suspect]
     Active Substance: SERTRALINE HYDROCHLORIDE
     Dosage: 150 MILLIGRAM DAILY;
     Route: 048
  3. ARIPIPRAZOLE [Concomitant]
     Active Substance: ARIPIPRAZOLE
  4. DOXEPIN [Concomitant]
     Active Substance: DOXEPIN
  5. MIRTAZAPINE [Concomitant]
     Active Substance: MIRTAZAPINE
  6. PERINDOPRIL [Concomitant]
     Active Substance: PERINDOPRIL
  7. VENLAFAXINE HYDROCHLORIDE [Concomitant]
     Active Substance: VENLAFAXINE HYDROCHLORIDE
  8. VITAMIN D [Concomitant]
     Active Substance: VITAMIN D NOS

REACTIONS (1)
  - Hepatitis [Unknown]
